FAERS Safety Report 5193454-7 (Version None)
Quarter: 2006Q4

REPORT INFORMATION
  Report Type: 
  Country: None (occurrence: None)
  Receive Date: 20061228
  Receipt Date: 20060424
  Transmission Date: 20070319
  Serious: No
  Sender: FDA-Public Use
  Company Number: US-GLAXOSMITHKLINE-A0602997A

PATIENT
  Age: 73 Year
  Sex: Female

DRUGS (11)
  1. FLONASE [Suspect]
     Dosage: 50MG PER DAY
     Route: 045
     Dates: start: 20060419, end: 20060423
  2. SYNTHROID [Concomitant]
  3. LASIX [Concomitant]
  4. NEXIUM [Concomitant]
  5. ALLOPURINOL SODIUM [Concomitant]
  6. ASPIRIN [Concomitant]
  7. CRESTOR [Concomitant]
  8. OMEPRAZOLE [Concomitant]
  9. MOBIC [Concomitant]
  10. CALTRATE [Concomitant]
  11. CENTRUM [Concomitant]

REACTIONS (4)
  - COUGH [None]
  - DYSPHONIA [None]
  - PHARYNGOLARYNGEAL PAIN [None]
  - SINUS OPERATION [None]
